FAERS Safety Report 12459162 (Version 1)
Quarter: 2016Q2

REPORT INFORMATION
  Report Type: Spontaneous
  Country: US (occurrence: None)
  Receive Date: 20160610
  Receipt Date: 20160610
  Transmission Date: 20160815
  Serious: No
  Sender: FDA-Public Use
  Company Number: None

PATIENT
  Age: 68 Year

DRUGS (1)
  1. CELEBREX [Suspect]
     Active Substance: CELECOXIB

REACTIONS (6)
  - Circulatory collapse [None]
  - Post procedural complication [None]
  - Unresponsive to stimuli [None]
  - No therapeutic response [None]
  - Pruritus generalised [None]
  - Swelling [None]

NARRATIVE: CASE EVENT DATE: 20151230
